FAERS Safety Report 22616661 (Version 1)
Quarter: 2023Q2

REPORT INFORMATION
  Report Type: Spontaneous
  Country: US (occurrence: US)
  Receive Date: 20230619
  Receipt Date: 20230619
  Transmission Date: 20230722
  Serious: No
  Sender: FDA-Public Use
  Company Number: US-SA-SAC20220823000219

PATIENT
  Age: 79 Year
  Sex: Female

DRUGS (12)
  1. DUPIXENT [Suspect]
     Active Substance: DUPILUMAB
     Indication: Asthma
     Dosage: 1 DF, QOW
     Route: 058
     Dates: start: 20200826
  2. CELEBREX [Concomitant]
     Active Substance: CELECOXIB
  3. TRAMADOL [Concomitant]
     Active Substance: TRAMADOL
  4. OXYCODONE [Concomitant]
     Active Substance: OXYCODONE
  5. TYLENOL [Concomitant]
     Active Substance: ACETAMINOPHEN
  6. ESTRADIOL [Concomitant]
     Active Substance: ESTRADIOL
  7. ATORVASTATIN [Concomitant]
     Active Substance: ATORVASTATIN
  8. LOSARTAN [Concomitant]
     Active Substance: LOSARTAN
  9. WIXELA INHUB [Concomitant]
     Active Substance: FLUTICASONE PROPIONATE\SALMETEROL XINAFOATE
  10. VITAMIN C [Concomitant]
     Active Substance: ASCORBIC ACID
  11. SAMBUCUS [SAMBUCUS NIGRA] [Concomitant]
  12. SODIUM CHLORIDE [Concomitant]
     Active Substance: SODIUM CHLORIDE

REACTIONS (3)
  - Cough [Unknown]
  - Incorrect dose administered [Unknown]
  - Device use error [Unknown]

NARRATIVE: CASE EVENT DATE: 20230519
